FAERS Safety Report 5910026-4 (Version None)
Quarter: 2008Q4

REPORT INFORMATION
  Report Type: 
  Country: None (occurrence: None)
  Receive Date: 20081007
  Receipt Date: 20080721
  Transmission Date: 20090506
  Serious: No
  Sender: FDA-Public Use
  Company Number: US-ASTRAZENECA-2006UW09253

PATIENT
  Age: 54 Year
  Sex: Female
  Weight: 105.2 kg

DRUGS (6)
  1. ARIMIDEX [Suspect]
     Indication: BREAST CANCER STAGE I
     Route: 048
     Dates: start: 20060101
  2. ARIMIDEX [Suspect]
     Indication: MALIGNANT BREAST LUMP REMOVAL
     Route: 048
     Dates: start: 20060101
  3. ARIMIDEX [Suspect]
     Indication: RADIOTHERAPY
     Route: 048
     Dates: start: 20060101
  4. ATENOLOL [Concomitant]
     Route: 048
  5. CALTRATE [Concomitant]
     Route: 048
  6. NAPROSYN [Concomitant]
     Route: 048

REACTIONS (3)
  - ARTHRITIS [None]
  - BLOOD CREATININE INCREASED [None]
  - SMEAR CERVIX ABNORMAL [None]
